FAERS Safety Report 19408313 (Version 1)
Quarter: 2021Q2

REPORT INFORMATION
  Report Type: Spontaneous
  Country: MX (occurrence: MX)
  Receive Date: 20210611
  Receipt Date: 20210611
  Transmission Date: 20210717
  Serious: Yes (Other)
  Sender: FDA-Public Use
  Company Number: MX-UCBSA-2021010827

PATIENT
  Age: 23 Year
  Sex: Male
  Weight: 80 kg

DRUGS (5)
  1. KRIADEX [Concomitant]
     Indication: PRODUCT USED FOR UNKNOWN INDICATION
     Dosage: UNK
  2. LEVETIRACETAM. [Concomitant]
     Active Substance: LEVETIRACETAM
     Indication: ANXIETY
     Dosage: UNK
  3. SERTRALINE [Concomitant]
     Active Substance: SERTRALINE HYDROCHLORIDE
     Indication: DEPRESSION
     Dosage: UNK
  4. BRIVIACT [Suspect]
     Active Substance: BRIVARACETAM
     Indication: ELECTRIC SHOCK
     Dosage: 12.5 MILLIGRAM (1/8 TABLET OF 100 MG), ONCE DAILY (QD)
     Route: 048
     Dates: start: 20210226, end: 202103
  5. BRIVIACT [Suspect]
     Active Substance: BRIVARACETAM
     Indication: OFF LABEL USE

REACTIONS (4)
  - Headache [Recovered/Resolved]
  - Underdose [Unknown]
  - Disorientation [Recovered/Resolved]
  - Off label use [Unknown]

NARRATIVE: CASE EVENT DATE: 2021
